FAERS Safety Report 7803802-4 (Version None)
Quarter: 2011Q4

REPORT INFORMATION
  Report Type: 
  Country: None (occurrence: None)
  Receive Date: 20111010
  Receipt Date: 20110927
  Transmission Date: 20120403
  Serious: Yes (Other)
  Sender: FDA-Public Use
  Company Number: US-ELI_LILLY_AND_COMPANY-US201109008281

PATIENT
  Sex: Male

DRUGS (6)
  1. HUMALOG [Suspect]
     Indication: TYPE 2 DIABETES MELLITUS
  2. ASPIRIN [Concomitant]
  3. HUMULIN 70/30 [Suspect]
     Indication: TYPE 2 DIABETES MELLITUS
  4. COGENTIN [Concomitant]
  5. ZOLOFT [Concomitant]
  6. RISPERDAL [Concomitant]

REACTIONS (10)
  - MULTIPLE DRUG OVERDOSE [None]
  - DIABETIC NEUROPATHY [None]
  - MENTAL DISORDER [None]
  - BIPOLAR DISORDER [None]
  - AMPUTATION [None]
  - OVERWEIGHT [None]
  - DIABETIC RETINOPATHY [None]
  - BLOOD GLUCOSE INCREASED [None]
  - CENTRAL OBESITY [None]
  - NUTRITIONAL CONDITION ABNORMAL [None]
